FAERS Safety Report 4318230-6 (Version None)
Quarter: 2004Q1

REPORT INFORMATION
  Report Type: 
  Country: None (occurrence: None)
  Receive Date: 20040315
  Receipt Date: 20040301
  Transmission Date: 20041129
  Serious: Yes (Other)
  Sender: FDA-Public Use
  Company Number: TUK2004A00013

PATIENT
  Age: 54 Year
  Sex: Female

DRUGS (9)
  1. ACTOS [Suspect]
     Indication: DIABETES MELLITUS
     Dosage: 15 MG ORAL/DAYS
     Route: 048
     Dates: start: 20021129, end: 20030127
  2. METFORMIN HCL [Concomitant]
  3. TRIMETHOPRIN (TRIMETHOPRIM) [Concomitant]
  4. ASPIRIN [Concomitant]
  5. ISOSORBIDE (ISOSORBIDE) [Concomitant]
  6. CO-AMILOZIDE (MODURETIC ^MSD^) [Concomitant]
  7. GEMFIBROZIL [Concomitant]
  8. ATENOLOL [Concomitant]
  9. SIMVASTATIN [Concomitant]

REACTIONS (3)
  - ARTHRALGIA [None]
  - OEDEMA PERIPHERAL [None]
  - WEIGHT INCREASED [None]
